FAERS Safety Report 7600801-2 (Version None)
Quarter: 2011Q2

REPORT INFORMATION
  Report Type: 
  Country: None (occurrence: None)
  Receive Date: 20110627
  Receipt Date: 20100506
  Transmission Date: 20111010
  Serious: Yes (Other)
  Sender: FDA-Public Use
  Company Number: 10-000701

PATIENT
  Sex: Female

DRUGS (6)
  1. LOESTRIN (ETHINYL ESTRADIOL, NORETHINDRONE ACETATE) TABLET, 20/1000UG [Suspect]
  2. PREMPRO [Suspect]
     Indication: HORMONE REPLACEMENT THERAPY
  3. CYCRIN [Suspect]
     Indication: HORMONE REPLACEMENT THERAPY
  4. ESTROPIPATE [Suspect]
     Indication: HORMONE REPLACEMENT THERAPY
  5. ESTRACE [Suspect]
     Indication: HORMONE REPLACEMENT THERAPY
  6. PREMARIN [Suspect]
     Indication: HORMONE REPLACEMENT THERAPY

REACTIONS (1)
  - BREAST CANCER [None]
